FAERS Safety Report 9254695 (Version 1)
Quarter: 2013Q2

REPORT INFORMATION
  Report Type: Spontaneous
  Country: US (occurrence: US)
  Receive Date: 20130425
  Receipt Date: 20130425
  Transmission Date: 20140414
  Serious: Yes (Hospitalization)
  Sender: FDA-Public Use
  Company Number: US-UCBSA-083965

PATIENT
  Sex: Female

DRUGS (10)
  1. KEPPRA XR [Suspect]
     Indication: CONVULSION
     Dates: start: 2011, end: 201211
  2. KEPPRA XR [Suspect]
     Indication: CONVULSION
     Dates: start: 201211
  3. PREDNISONE [Concomitant]
  4. PREDNISONE [Concomitant]
     Dosage: 40MG DAILY X 3 DAYS
  5. ADVAIR [Concomitant]
     Dosage: (250/50), ONE INHALATION
     Route: 055
  6. VITAMIN D [Concomitant]
     Dosage: 800UNITS
  7. VITAMIN B12 [Concomitant]
     Dosage: 1000MG DAILY
  8. ASPIRIN [Concomitant]
     Dosage: 325MG DAILY
  9. NICODERM [Concomitant]
  10. LISINOPRIL [Concomitant]
     Dosage: 10MG DAILY

REACTIONS (3)
  - Pneumonia [Recovering/Resolving]
  - Convulsion [Unknown]
  - Inappropriate schedule of drug administration [Unknown]
